FAERS Safety Report 22280303 (Version 1)
Quarter: 2023Q2

REPORT INFORMATION
  Report Type: Report from Study
  Country: BR (occurrence: US)
  Receive Date: 20230503
  Receipt Date: 20230503
  Transmission Date: 20230722
  Serious: Yes (Other)
  Sender: FDA-Public Use
  Company Number: 2022A117503

PATIENT
  Age: 51 Year
  Sex: Male
  Weight: 71 kg

DRUGS (6)
  1. FASENRA [Suspect]
     Active Substance: BENRALIZUMAB
     Indication: Asthma
     Dosage: UNKNOWN
     Route: 057
     Dates: start: 20211010
  2. SYMBICORT [Suspect]
     Active Substance: BUDESONIDE\FORMOTEROL FUMARATE DIHYDRATE
     Dosage: 12/400MCG ORALLY ASPIRATED ONCE IN THE MORNING
     Route: 055
  3. ALBUTEROL [Concomitant]
     Active Substance: ALBUTEROL
     Indication: Cardiovascular somatic symptom disorder
  4. ALBUTEROL [Concomitant]
     Active Substance: ALBUTEROL
     Indication: Mid-life crisis
  5. SODIUM CHLORIDE [Concomitant]
     Active Substance: SODIUM CHLORIDE
  6. NARINEX [Concomitant]

REACTIONS (11)
  - Sinusitis [Not Recovered/Not Resolved]
  - Heart rate decreased [Recovered/Resolved]
  - Influenza [Not Recovered/Not Resolved]
  - Pruritus [Not Recovered/Not Resolved]
  - Dyspnoea [Not Recovered/Not Resolved]
  - Pyrexia [Recovered/Resolved]
  - Hypersensitivity [Recovering/Resolving]
  - Nasal congestion [Not Recovered/Not Resolved]
  - Nasal septum deviation [Not Recovered/Not Resolved]
  - COVID-19 [Unknown]
  - Blood pressure abnormal [Unknown]

NARRATIVE: CASE EVENT DATE: 20200101
